FAERS Safety Report 7651255-1 (Version None)
Quarter: 2011Q3

REPORT INFORMATION
  Report Type: 
  Country: None (occurrence: None)
  Receive Date: 20110727
  Receipt Date: 20110715
  Transmission Date: 20111222
  Serious: Yes (Other)
  Sender: FDA-Public Use
  Company Number: 1000022308

PATIENT
  Age: 32 Year
  Sex: Female
  Weight: 52.5 kg

DRUGS (8)
  1. LORAZEPAM [Concomitant]
  2. CITALOPRAM HYDROBROMIDE [Suspect]
     Dosage: 20 MG (20 MG, 1 IN 1 D), ORAL
     Route: 048
     Dates: start: 20100101
  3. EUNERPAN (MELPERONE HYDROCHLORIDE) [Concomitant]
  4. RISPERDAL [Suspect]
     Dosage: SEE IMAGE: ORAL
     Route: 048
     Dates: start: 20110312, end: 20110323
  5. RISPERDAL [Suspect]
     Dosage: SEE IMAGE: ORAL
     Route: 048
     Dates: start: 20110123, end: 20110123
  6. RISPERDAL [Suspect]
     Dosage: SEE IMAGE: ORAL
     Route: 048
     Dates: start: 20110131, end: 20110311
  7. RISPERDAL [Suspect]
     Dosage: SEE IMAGE: ORAL
     Route: 048
     Dates: start: 20110124, end: 20110126
  8. RISPERDAL [Suspect]
     Dosage: SEE IMAGE: ORAL
     Route: 048
     Dates: start: 20110127, end: 20110130

REACTIONS (4)
  - GALACTORRHOEA [None]
  - CONDITION AGGRAVATED [None]
  - DRUG INTERACTION [None]
  - SCHIZOAFFECTIVE DISORDER DEPRESSIVE TYPE [None]
